FAERS Safety Report 6826087-4 (Version None)
Quarter: 2010Q3

REPORT INFORMATION
  Report Type: 
  Country: None (occurrence: None)
  Receive Date: 20100709
  Receipt Date: 20100608
  Transmission Date: 20110219
  Serious: No
  Sender: FDA-Public Use
  Company Number: US-BAYER-201016688BCC

PATIENT
  Age: 73 Year
  Sex: Male
  Weight: 118 kg

DRUGS (7)
  1. ALEVE (CAPLET) [Suspect]
     Indication: ARTHRALGIA
     Dosage: TOTAL DAILY DOSE: 220 MG  UNIT DOSE: 220 MG
     Route: 048
     Dates: start: 20100606, end: 20100607
  2. VICODIN [Concomitant]
     Dosage: TOOK 3 TIMES IN 2 WEEKS
     Route: 065
  3. BENAZEPRIL HYDROCHLORIDE [Concomitant]
     Route: 065
  4. GLIPIZIDE [Concomitant]
     Route: 065
  5. METFORMIN HCL [Concomitant]
     Route: 065
  6. TRAMADOL [Concomitant]
     Dosage: 5 TIMES A DAY FOR 3 WEEKS
     Route: 065
  7. UNKNOWN CHOLESTEROL MEDICATION [Concomitant]

REACTIONS (3)
  - ABDOMINAL DISCOMFORT [None]
  - ABDOMINAL PAIN UPPER [None]
  - FAECES DISCOLOURED [None]
